FAERS Safety Report 14867902 (Version 1)
Quarter: 2018Q2

REPORT INFORMATION
  Report Type: Spontaneous
  Country: MX (occurrence: MX)
  Receive Date: 20180509
  Receipt Date: 20180509
  Transmission Date: 20180711
  Serious: Yes (Hospitalization)
  Sender: FDA-Public Use
  Company Number: MX-SUN PHARMACEUTICAL INDUSTRIES LTD-2018R1-171824

PATIENT
  Age: 59 Year
  Sex: Male

DRUGS (3)
  1. IPRATROPIUM BROMIDE. [Concomitant]
     Active Substance: IPRATROPIUM BROMIDE
     Indication: ASTHMA PROPHYLAXIS
     Dosage: NEBULIZED THROUGH A MOUTHPIECE
     Route: 055
  2. SALBUTAMOL [Suspect]
     Active Substance: ALBUTEROL
     Indication: ASTHMA PROPHYLAXIS
     Dosage: FIVE DOSES OF NEBULIZED ALBUTEROL (TOTAL DOSE OF 32.5 MG)
     Route: 055
  3. HYDROCORTISONE. [Concomitant]
     Active Substance: HYDROCORTISONE
     Indication: ASTHMA PROPHYLAXIS
     Dosage: 100 MG, BID
     Route: 042

REACTIONS (2)
  - Lactic acidosis [Recovered/Resolved]
  - Atrial fibrillation [Recovered/Resolved]
